FAERS Safety Report 21975141 (Version 1)
Quarter: 2023Q1

REPORT INFORMATION
  Report Type: Spontaneous
  Country: DE (occurrence: DE)
  Receive Date: 20230209
  Receipt Date: 20230209
  Transmission Date: 20230418
  Serious: Yes (Death, Life-Threatening, Hospitalization)
  Sender: FDA-Public Use
  Company Number: DE-STRIDES ARCOLAB LIMITED-2023SP002020

PATIENT
  Age: 30 Year
  Sex: Male

DRUGS (3)
  1. PREDNISOLONE [Suspect]
     Active Substance: PREDNISOLONE
     Indication: Crohn^s disease
     Dosage: 1 MILLIGRAM/KILOGRAM
     Route: 065
  2. AZATHIOPRINE [Suspect]
     Active Substance: AZATHIOPRINE
     Indication: Crohn^s disease
     Dosage: UNK
     Route: 065
  3. USTEKINUMAB [Suspect]
     Active Substance: USTEKINUMAB
     Indication: Crohn^s disease
     Dosage: UNK
     Route: 065

REACTIONS (11)
  - Septic shock [Fatal]
  - Multiple organ dysfunction syndrome [Fatal]
  - Cardiopulmonary failure [Fatal]
  - Acute respiratory failure [Not Recovered/Not Resolved]
  - Acute respiratory distress syndrome [Unknown]
  - Oesophagitis [Unknown]
  - Systemic candida [Unknown]
  - Pneumonia [Not Recovered/Not Resolved]
  - Hepatitis E [Unknown]
  - Whipple^s disease [Not Recovered/Not Resolved]
  - Herpes simplex [Unknown]
